FAERS Safety Report 24781788 (Version 1)
Quarter: 2024Q4

REPORT INFORMATION
  Report Type: Spontaneous
  Country: PT (occurrence: PT)
  Receive Date: 20241227
  Receipt Date: 20241227
  Transmission Date: 20250114
  Serious: Yes (Hospitalization, Other)
  Sender: RYAN LABORATORIES LLC
  Company Number: PT-Ryan-000014

PATIENT
  Age: 7 Month

DRUGS (4)
  1. PREDNISOLONE [Suspect]
     Active Substance: PREDNISOLONE
     Indication: Infantile spasms
     Dosage: OVER THE COURSE OF ONE WEEK
     Route: 065
  2. VIGABATRIN [Suspect]
     Active Substance: VIGABATRIN
     Indication: Infantile spasms
     Route: 065
  3. VIGABATRIN [Suspect]
     Active Substance: VIGABATRIN
     Indication: Infantile spasms
     Route: 065
  4. VIGABATRIN [Suspect]
     Active Substance: VIGABATRIN
     Indication: Infantile spasms
     Route: 065

REACTIONS (4)
  - Infantile spasms [Recovering/Resolving]
  - Drug ineffective [Unknown]
  - Encephalopathy [Recovered/Resolved]
  - Disease recurrence [Recovering/Resolving]
